FAERS Safety Report 4601933-3 (Version None)
Quarter: 2005Q1

REPORT INFORMATION
  Report Type: 
  Country: None (occurrence: None)
  Receive Date: 20050131
  Receipt Date: 20041118
  Transmission Date: 20050727
  Serious: No
  Sender: FDA-Public Use
  Company Number: 200418950US

PATIENT

DRUGS (1)
  1. KETEK [Suspect]

REACTIONS (1)
  - VISION BLURRED [None]
